FAERS Safety Report 18991294 (Version 2)
Quarter: 2022Q3

REPORT INFORMATION
  Report Type: Spontaneous
  Country: US (occurrence: US)
  Receive Date: 20210310
  Receipt Date: 20220915
  Transmission Date: 20221026
  Serious: Yes (Other)
  Sender: FDA-Public Use
  Company Number: US-INCYTE CORPORATION-2021IN001802

PATIENT

DRUGS (3)
  1. JAKAFI [Suspect]
     Active Substance: RUXOLITINIB
     Indication: Chronic graft versus host disease in skin
     Dosage: 2.5 MILLIGRAM, BID (STARTING DOSE)
     Route: 048
  2. JAKAFI [Suspect]
     Active Substance: RUXOLITINIB
     Indication: Chronic graft versus host disease oral
     Dosage: 10 MILLIGRAM, BID (MAXIMUM DAILY DOSE)
     Route: 048
  3. PREDNISONE [Concomitant]
     Active Substance: PREDNISONE
     Indication: Product used for unknown indication
     Dosage: 0.11 MG/KG
     Route: 065

REACTIONS (6)
  - Gastroenteritis adenovirus [Unknown]
  - Epstein-Barr virus infection reactivation [Unknown]
  - BK virus infection [Unknown]
  - Therapy partial responder [Unknown]
  - Off label use [Unknown]
  - Wrong technique in product usage process [Unknown]
